FAERS Safety Report 4926108-X (Version None)
Quarter: 2006Q1

REPORT INFORMATION
  Report Type: 
  Country: None (occurrence: None)
  Receive Date: 20060228
  Receipt Date: 20050819
  Transmission Date: 20060701
  Serious: Yes (Other)
  Sender: FDA-Public Use
  Company Number: US-GLAXOSMITHKLINE-A0570919A

PATIENT
  Age: 57 Year
  Sex: Female
  Weight: 90.9 kg

DRUGS (6)
  1. LAMICTAL [Suspect]
     Indication: BIPOLAR DISORDER
     Dosage: 100MG TWICE PER DAY
     Route: 048
     Dates: start: 20031016, end: 20050101
  2. ABILIFY [Concomitant]
     Dosage: 15MG PER DAY
     Route: 048
  3. REMERON [Concomitant]
     Dosage: 30MG AT NIGHT
     Route: 048
  4. SEROQUEL [Concomitant]
     Dosage: 75MG AT NIGHT
     Route: 048
  5. LISINOPRIL [Concomitant]
     Dosage: 10MG PER DAY
     Route: 048
  6. SYNTHROID [Concomitant]
     Dosage: .05MG PER DAY
     Route: 048

REACTIONS (1)
  - DEAFNESS [None]
